FAERS Safety Report 8815109 (Version 2)
Quarter: 2015Q1

REPORT INFORMATION
  Report Type: Report from Study
  Country: US (occurrence: US)
  Receive Date: 20120928
  Receipt Date: 20150128
  Transmission Date: 20150721
  Serious: Yes (Death)
  Sender: FDA-Public Use
  Company Number: US-ROCHE-1129641

PATIENT
  Sex: Female

DRUGS (13)
  1. TYLENOL [Concomitant]
     Active Substance: ACETAMINOPHEN
  2. MEVACOR [Concomitant]
     Active Substance: LOVASTATIN
  3. SENOKOT [Concomitant]
     Active Substance: SENNOSIDES
  4. ALEVE [Concomitant]
     Active Substance: NAPROXEN SODIUM
  5. HERCEPTIN [Suspect]
     Active Substance: TRASTUZUMAB
     Dosage: MAINTENANCE DOSE.
     Route: 042
  6. HERCEPTIN [Suspect]
     Active Substance: TRASTUZUMAB
     Indication: BREAST CANCER FEMALE
     Dosage: LOADING DOSE.
     Route: 042
     Dates: start: 19990818
  7. AREDIA [Suspect]
     Active Substance: PAMIDRONATE DISODIUM
     Indication: BREAST CANCER FEMALE
     Route: 065
  8. PAXIL (UNITED STATES) [Concomitant]
  9. DECADRON [Concomitant]
     Active Substance: DEXAMETHASONE
  10. DARVOCET [Concomitant]
     Active Substance: ACETAMINOPHEN\PROPOXYPHENE HYDROCHLORIDE
  11. OXYCONTIN [Suspect]
     Active Substance: OXYCODONE HYDROCHLORIDE
     Indication: PRODUCT USED FOR UNKNOWN INDICATION
     Route: 065
  12. PRILOSEC [Concomitant]
     Active Substance: OMEPRAZOLE MAGNESIUM
  13. ALLEGRA [Concomitant]
     Active Substance: FEXOFENADINE HYDROCHLORIDE

REACTIONS (17)
  - Tearfulness [Unknown]
  - Disturbance in attention [Unknown]
  - Depression [Unknown]
  - Sensory disturbance [Unknown]
  - Fatigue [Unknown]
  - Odynophagia [Unknown]
  - Hypoaesthesia [Unknown]
  - Bone pain [Unknown]
  - Death [Fatal]
  - Rib fracture [Unknown]
  - Dyspepsia [Unknown]
  - Nausea [Unknown]
  - Disease progression [Unknown]
  - Malaise [Unknown]
  - Asthenia [Unknown]
  - Drug intolerance [Unknown]
  - Rash [Unknown]
